FAERS Safety Report 8902624 (Version 1)
Quarter: 2012Q4

REPORT INFORMATION
  Report Type: 
  Country: FR (occurrence: FR)
  Receive Date: 20121112
  Receipt Date: 20121112
  Transmission Date: 20130627
  Serious: Yes (Hospitalization)
  Sender: FDA-Public Use
  Company Number: FR-JNJFOC-20121101615

PATIENT
  Age: 42 Year
  Sex: Female

DRUGS (1)
  1. RISPERDAL CONSTA [Suspect]
     Indication: SCHIZOPHRENIA
     Route: 058

REACTIONS (4)
  - Delirium [Recovering/Resolving]
  - Injection site induration [Unknown]
  - Injection site extravasation [Unknown]
  - Incorrect route of drug administration [Unknown]
